FAERS Safety Report 25999857 (Version 1)
Quarter: 2025Q4

REPORT INFORMATION
  Report Type: Spontaneous
  Country: US (occurrence: None)
  Receive Date: 20251104
  Receipt Date: 20251104
  Transmission Date: 20260118
  Serious: Yes (Other)
  Sender: FDA-CTU
  Company Number: None

PATIENT
  Sex: Female

DRUGS (11)
  1. LENALIDOMIDE [Suspect]
     Active Substance: LENALIDOMIDE
     Indication: Plasma cell myeloma
     Dosage: FREQUENCY : DAILY;?
     Route: 048
     Dates: start: 20250208
  2. DARATUMUMAB [Suspect]
     Active Substance: DARATUMUMAB
  3. DARZALEX SOL FASPRO [Concomitant]
  4. GAS RELIEF CHW [Concomitant]
  5. LIPITOR [Concomitant]
     Active Substance: ATORVASTATIN CALCIUM
  6. OMEPRAZOLE [Concomitant]
     Active Substance: OMEPRAZOLE
  7. OXYCODONE [Concomitant]
     Active Substance: OXYCODONE
  8. POT CHLORIDE ER [Concomitant]
  9. REVLIMID [Concomitant]
     Active Substance: LENALIDOMIDE
  10. TIZANIDINE [Concomitant]
     Active Substance: TIZANIDINE
  11. TRAMADOL HCL [Concomitant]
     Active Substance: TRAMADOL HYDROCHLORIDE

REACTIONS (1)
  - Invasive ductal breast carcinoma [None]
